FAERS Safety Report 25335593 (Version 1)
Quarter: 2025Q2

REPORT INFORMATION
  Report Type: Report from Study
  Country: CA (occurrence: None)
  Receive Date: 20250520
  Receipt Date: 20250520
  Transmission Date: 20250717
  Serious: Yes (Other)
  Sender: ENCUBE ETHICALS
  Company Number: CA-Encube-001827

PATIENT
  Sex: Female

DRUGS (4)
  1. LIDOCAINE [Suspect]
     Active Substance: LIDOCAINE
     Indication: Analgesic therapy
  2. ACETAMINOPHEN [Concomitant]
     Active Substance: ACETAMINOPHEN
     Indication: Analgesic therapy
     Dosage: 12.5 MGKG-1 UP TO 650 MG PER DOSE
     Route: 048
  3. KETOROLAC [Concomitant]
     Active Substance: KETOROLAC TROMETHAMINE
     Indication: Analgesic therapy
     Dosage: 0.5 MGKG-1 UP TO 15 MG PER DOSE
  4. CLONIDINE [Concomitant]
     Active Substance: CLONIDINE
     Indication: Analgesic therapy
     Dosage: 1 MICROGRAMKILOGRAM-1 UP TO 50 MICROGRAM PER DOSE

REACTIONS (3)
  - Local anaesthetic systemic toxicity [Recovered/Resolved]
  - Dysgeusia [Recovered/Resolved]
  - Off label use [Unknown]
